FAERS Safety Report 17571441 (Version 1)
Quarter: 2020Q1

REPORT INFORMATION
  Report Type: Spontaneous
  Country: US (occurrence: US)
  Receive Date: 20200323
  Receipt Date: 20200323
  Transmission Date: 20200409
  Serious: No
  Sender: FDA-Public Use
  Company Number: US-BAYER-2020-041655

PATIENT
  Age: 11 Year
  Sex: Male

DRUGS (5)
  1. QUETIAPINE XR [Concomitant]
     Active Substance: QUETIAPINE
     Dosage: 200 MG, BID
  2. MELATONIN [Concomitant]
     Active Substance: MELATONIN
     Dosage: 3 MG
  3. MACROGOL 3350 [Suspect]
     Active Substance: POLYETHYLENE GLYCOL 3350
     Dosage: UNK(1 CAPFUL  TO TIMES PER WEEK)
  4. FLETCHER^S PHOSPHATE ENEMA [Concomitant]
     Dosage: UNK
  5. QUETIAPINE XR [Concomitant]
     Active Substance: QUETIAPINE
     Dosage: 50 MG, BID

REACTIONS (1)
  - Drug intolerance [None]
